FAERS Safety Report 4427303-9 (Version None)
Quarter: 2004Q3

REPORT INFORMATION
  Report Type: 
  Country: None (occurrence: None)
  Receive Date: 20040817
  Receipt Date: 20040806
  Transmission Date: 20050211
  Serious: Yes (Disabling)
  Sender: FDA-Public Use
  Company Number: FR-BRISTOL-MYERS SQUIBB COMPANY-12663431

PATIENT
  Age: 70 Year
  Sex: Female

DRUGS (1)
  1. TAXOL [Suspect]
     Indication: OVARIAN NEOPLASM
     Route: 042
     Dates: start: 20021211, end: 20031124

REACTIONS (2)
  - NEUROPATHY PERIPHERAL [None]
  - SCLERODERMA [None]
